FAERS Safety Report 10702661 (Version 1)
Quarter: 2015Q1

REPORT INFORMATION
  Report Type: Spontaneous
  Country: US (occurrence: US)
  Receive Date: 20150109
  Receipt Date: 20150109
  Transmission Date: 20150721
  Serious: No
  Sender: FDA-Public Use
  Company Number: US-GLAXOSMITHKLINE-US2014032103

PATIENT
  Sex: Male

DRUGS (1)
  1. NICORETTE [Suspect]
     Active Substance: NICOTINE
     Route: 002

REACTIONS (8)
  - Muscle spasms [Unknown]
  - Arthralgia [Unknown]
  - Spinal pain [Unknown]
  - Gait disturbance [Unknown]
  - Fatigue [Unknown]
  - Hippus [Unknown]
  - Muscle twitching [Unknown]
  - Headache [Unknown]
